FAERS Safety Report 19078425 (Version 1)
Quarter: 2021Q1

REPORT INFORMATION
  Report Type: Spontaneous
  Country: US (occurrence: US)
  Receive Date: 20210331
  Receipt Date: 20210331
  Transmission Date: 20210420
  Serious: Yes (Hospitalization)
  Sender: FDA-Public Use
  Company Number: None

PATIENT
  Sex: Female

DRUGS (2)
  1. HUMIRA [Suspect]
     Active Substance: ADALIMUMAB
     Indication: CROHN^S DISEASE
     Dosage: ?          OTHER FREQUENCY:Q14D;?
     Route: 060
     Dates: start: 20150211
  2. ZOLOFT; JUNEL FE; B12; OMEPRAZOLE [Concomitant]

REACTIONS (2)
  - Diverticulitis [None]
  - Therapy interrupted [None]
